FAERS Safety Report 8470186-0 (Version None)
Quarter: 2012Q2

REPORT INFORMATION
  Report Type: 
  Country: None (occurrence: None)
  Receive Date: 20120621
  Receipt Date: 20120621
  Transmission Date: 20120825
  Serious: Yes (Death)
  Sender: FDA-Public Use
  Company Number: None

PATIENT
  Sex: Male

DRUGS (8)
  1. PROZAC [Concomitant]
  2. AMERGE [Concomitant]
  3. PAMELOR [Suspect]
     Indication: MIGRAINE
     Dosage: 150 MG ONCE A DAY PO
     Route: 048
     Dates: start: 20111101, end: 20120406
  4. ZOFRANE [Concomitant]
  5. VITAMIN B-12 [Concomitant]
  6. DEPAKOTE ER [Concomitant]
  7. ZONEGRAN [Concomitant]
  8. SINGULAIR [Concomitant]

REACTIONS (5)
  - TREMOR [None]
  - FATIGUE [None]
  - HYPOTENSION [None]
  - ASTHENIA [None]
  - DIZZINESS [None]
